FAERS Safety Report 10406917 (Version 1)
Quarter: 2014Q3

REPORT INFORMATION
  Report Type: Spontaneous
  Country: US (occurrence: None)
  Receive Date: 20140822
  Receipt Date: 20140822
  Transmission Date: 20150326
  Serious: Yes (Hospitalization)
  Sender: FDA-Public Use
  Company Number: None

PATIENT
  Age: 66 Year
  Sex: Female
  Weight: 105.24 kg

DRUGS (1)
  1. AUBAGIO [Suspect]
     Active Substance: TERIFLUNOMIDE
     Indication: MULTIPLE SCLEROSIS
     Dosage: AUBAGIO ( B) 14 MG TAB QD PO
     Route: 048
     Dates: start: 20140707, end: 20140731

REACTIONS (3)
  - Confusional state [None]
  - Aphasia [None]
  - Asthenia [None]

NARRATIVE: CASE EVENT DATE: 20140731
